FAERS Safety Report 4532584-7 (Version None)
Quarter: 2004Q4

REPORT INFORMATION
  Report Type: 
  Country: None (occurrence: None)
  Receive Date: 20041206
  Receipt Date: 20041001
  Transmission Date: 20050328
  Serious: No
  Sender: FDA-Public Use
  Company Number: USA041079905

PATIENT
  Age: 55 Year
  Sex: Female
  Weight: 58 kg

DRUGS (8)
  1. PROZAC [Suspect]
     Indication: DEPRESSION
     Dates: end: 20030101
  2. CYMBALTA [Suspect]
     Indication: DEPRESSION
     Dosage: 60 MG/ 1 DAY
     Dates: start: 20040907
  3. IMITREX [Concomitant]
  4. TOPAMAX [Concomitant]
  5. AMBIEN [Concomitant]
  6. TALACEN [Concomitant]
  7. AMITRIPTYLINE [Concomitant]
  8. ALLEGRA [Concomitant]

REACTIONS (10)
  - ABDOMINAL PAIN UPPER [None]
  - FATIGUE [None]
  - GASTROOESOPHAGEAL REFLUX DISEASE [None]
  - MIGRAINE [None]
  - NAUSEA [None]
  - SEXUAL DYSFUNCTION [None]
  - SLEEP DISORDER [None]
  - WEIGHT [None]
  - WEIGHT DECREASED [None]
  - WEIGHT INCREASED [None]
